FAERS Safety Report 7508043-6 (Version None)
Quarter: 2011Q2

REPORT INFORMATION
  Report Type: 
  Country: None (occurrence: None)
  Receive Date: 20110519
  Receipt Date: 20110509
  Transmission Date: 20111010
  Serious: Yes (Hospitalization, Other)
  Sender: FDA-Public Use
  Company Number: 2011SP021013

PATIENT
  Age: 71 Year
  Sex: Male

DRUGS (1)
  1. MOMETASONE FUROATE [Suspect]
     Indication: PRURITUS

REACTIONS (14)
  - DYSPNOEA [None]
  - POLLAKIURIA [None]
  - LYMPHADENOPATHY [None]
  - RENAL DISORDER [None]
  - PNEUMONIA [None]
  - DIZZINESS [None]
  - LYMPH NODE PAIN [None]
  - ACUTE RESPIRATORY FAILURE [None]
  - FATIGUE [None]
  - INFLUENZA [None]
  - SKIN EXFOLIATION [None]
  - RENAL FAILURE ACUTE [None]
  - DRUG INEFFECTIVE [None]
  - FEELING COLD [None]
